FAERS Safety Report 23839649 (Version 1)
Quarter: 2024Q2

REPORT INFORMATION
  Report Type: Spontaneous
  Country: US (occurrence: US)
  Receive Date: 20240510
  Receipt Date: 20240510
  Transmission Date: 20240716
  Serious: No
  Sender: FDA-Public Use
  Company Number: US-AMGEN-USASP2024092299

PATIENT
  Age: 63 Year
  Sex: Male

DRUGS (20)
  1. OTEZLA [Suspect]
     Active Substance: APREMILAST
     Indication: Psoriatic arthropathy
     Dosage: 30 MILLIGRAM, BID
     Route: 048
     Dates: start: 20240320
  2. ACARBOSE [Concomitant]
     Active Substance: ACARBOSE
     Dosage: 100 MILLIGRAM
  3. PIOGLITAZONE [Concomitant]
     Active Substance: PIOGLITAZONE
  4. ALLOPURINOL [Concomitant]
     Active Substance: ALLOPURINOL
  5. AMLODIPINE [Concomitant]
     Active Substance: AMLODIPINE BESYLATE
  6. ASPIRIN [Concomitant]
     Active Substance: ASPIRIN
     Dosage: 81 MILLIGRAM
  7. BREZTRI [Concomitant]
     Active Substance: BUDESONIDE\FORMOTEROL\GLYCOPYRROLATE
  8. COLCHICINE [Concomitant]
     Active Substance: COLCHICINE
  9. FARXIGA [Concomitant]
     Active Substance: DAPAGLIFLOZIN PROPANEDIOL
  10. FLONASE [Concomitant]
     Active Substance: FLUTICASONE PROPIONATE
  11. GABAPENTIN [Concomitant]
     Active Substance: GABAPENTIN
  12. HYDROCHLOROTHIAZIDE\LISINOPRIL [Concomitant]
     Active Substance: HYDROCHLOROTHIAZIDE\LISINOPRIL
  13. METFORMIN [Concomitant]
     Active Substance: METFORMIN HYDROCHLORIDE
  14. OZEMPIC [Concomitant]
     Active Substance: SEMAGLUTIDE
  15. TIZANIDINE [Concomitant]
     Active Substance: TIZANIDINE
  16. GLIMEPIRIDE [Concomitant]
     Active Substance: GLIMEPIRIDE
  17. BETAMETHASONE [Concomitant]
     Active Substance: BETAMETHASONE\BETAMETHASONE DIPROPIONATE
     Dosage: LOTION
  18. NYSTATIN [Concomitant]
     Active Substance: NYSTATIN
  19. OMEGA 3 [Concomitant]
     Active Substance: CAPSAICIN
  20. VITAMIN D [Concomitant]
     Active Substance: VITAMIN D NOS

REACTIONS (1)
  - Diarrhoea [Not Recovered/Not Resolved]

NARRATIVE: CASE EVENT DATE: 20240101
